FAERS Safety Report 25497790 (Version 1)
Quarter: 2025Q3

REPORT INFORMATION
  Report Type: Other
  Country: EU (occurrence: EU)
  Receive Date: 20250701
  Receipt Date: 20250701
  Transmission Date: 20251021
  Serious: Yes (Hospitalization)
  Sender: ZYDUS PHARM
  Company Number: None

PATIENT

DRUGS (6)
  1. BISOPROLOL [Suspect]
     Active Substance: BISOPROLOL
     Indication: Hypertension
     Route: 048
     Dates: start: 20250121
  2. DEXKETOPROFEN [Suspect]
     Active Substance: DEXKETOPROFEN
     Indication: Pain
     Route: 048
     Dates: start: 20250226
  3. LOSARTAN [Suspect]
     Active Substance: LOSARTAN
     Indication: Hypertension
     Route: 048
     Dates: start: 20250323
  4. DOXAZOSIN [Suspect]
     Active Substance: DOXAZOSIN MESYLATE
     Indication: Hypertension
     Route: 048
     Dates: start: 20250121
  5. TAPENTADOL [Suspect]
     Active Substance: TAPENTADOL
     Indication: Product used for unknown indication
     Route: 065
     Dates: start: 20250321
  6. SITAGLIPTIN [Concomitant]
     Active Substance: SITAGLIPTIN
     Indication: Product used for unknown indication
     Route: 065
     Dates: start: 20150421

REACTIONS (3)
  - Disorientation [Recovered/Resolved]
  - Hypotension [Recovered/Resolved]
  - Acute kidney injury [Recovering/Resolving]

NARRATIVE: CASE EVENT DATE: 20250326
